FAERS Safety Report 9242514 (Version 2)
Quarter: 2013Q2

REPORT INFORMATION
  Report Type: Spontaneous
  Country: US (occurrence: US)
  Receive Date: 20130419
  Receipt Date: 20130501
  Transmission Date: 20140414
  Serious: Yes (Hospitalization, Other)
  Sender: FDA-Public Use
  Company Number: US-PFIZER INC-2013120700

PATIENT
  Age: 62 Year
  Sex: Male
  Weight: 73.47 kg

DRUGS (16)
  1. COLCHICINE [Concomitant]
     Indication: ARTHRITIS
     Dosage: 0.6 MG, 1X/DAY
     Route: 048
  2. COLCHICINE [Concomitant]
     Indication: GOUT
  3. ZAROXOLYN [Concomitant]
     Dosage: 10 MG, 2X/DAY
     Route: 048
  4. PROVENTIL HFA ^KEY PHARMACEUTICAL^ [Concomitant]
     Dosage: LNHALE 2 PUFFS INTO THE LUNGS EVERY 6 HOURS AS NEEDED
  5. ROCALTROL [Concomitant]
     Dosage: 0.25 UG, 1X/DAY
     Route: 048
  6. INSPRA [Concomitant]
     Dosage: 25 MG, 1X/DAY
     Route: 048
  7. ERGOCALCIFEROL [Concomitant]
     Dosage: 50000 UNIT, TAKE 1 CAPSULE WEEKLY FOR 4 WEEKS ONLY THEN TAKE 1 CAPSULE MONTHLY FOR 5 MONTHS
  8. FEBUXOSTAT [Concomitant]
     Dosage: 40 MG, DAILY AS NEEDED
     Route: 048
  9. DUONEB [Concomitant]
     Indication: WHEEZING
     Dosage: INHALE 3 ML INTO THE LUNGS EVERY 6 HOURS AS NEEDED FOR 30 DOSES
  10. TOPROL XL [Concomitant]
     Dosage: 25 MG, QD NIGHTLY
     Route: 048
  11. ZOFRAN [Concomitant]
     Indication: NAUSEA
     Dosage: 4 MG, TAKE 1 TABLE EVERY 8 HOURS AS NEEDED
     Route: 048
  12. POTASSIUM CHLORIDE [Concomitant]
     Dosage: 10 MEQ, TAKE 8 TABLETS, 2X/DAY
     Route: 048
  13. WARFARIN [Concomitant]
     Dosage: 5 MG, UNK
  14. ULTRAM [Concomitant]
     Indication: PAIN
     Dosage: 50 MG, 1 TABLET BY MOUTH EVERY 8 HOURS AS NEEDED
     Route: 048
  15. REVATIO [Suspect]
     Indication: PULMONARY ARTERIAL HYPERTENSION
     Dosage: 20 MG, 3X/DAY
     Route: 048
     Dates: start: 20010707
  16. BUMEX [Concomitant]
     Dosage: TAKE 4 2MG  TABLETS, 2X/DAY
     Route: 048

REACTIONS (28)
  - Cardiac failure acute [Not Recovered/Not Resolved]
  - Cardiac failure chronic [Not Recovered/Not Resolved]
  - Pulmonary oedema [Unknown]
  - Pleural effusion [Unknown]
  - Pulmonary hypertension [Unknown]
  - Cardiorenal syndrome [Unknown]
  - Cardiomyopathy [Unknown]
  - Renal failure acute [Unknown]
  - Mitral valve disease [Unknown]
  - Mitral valve incompetence [Unknown]
  - Atrial fibrillation [Unknown]
  - Sick sinus syndrome [Unknown]
  - Hypertension [Unknown]
  - Tricuspid valve incompetence [Unknown]
  - Fluid overload [Unknown]
  - Hepatic cirrhosis [Unknown]
  - Ascites [Unknown]
  - Arthralgia [Unknown]
  - Gout [Unknown]
  - Monoclonal gammopathy [Unknown]
  - Thrombocytopenia [Unknown]
  - Anaemia of chronic disease [Unknown]
  - Incision site pain [Unknown]
  - Decreased appetite [Unknown]
  - Nausea [Unknown]
  - Early satiety [Unknown]
  - Dysgeusia [Unknown]
  - Abdominal discomfort [Unknown]
